FAERS Safety Report 5376579-2 (Version None)
Quarter: 2007Q2

REPORT INFORMATION
  Report Type: 
  Country: None (occurrence: None)
  Receive Date: 20070629
  Receipt Date: 20070612
  Transmission Date: 20071010
  Serious: Yes (Life-Threatening, Hospitalization)
  Sender: FDA-Public Use
  Company Number: DSA_29932_2007

PATIENT
  Sex: Female

DRUGS (1)
  1. TAVOR /00273201/ (TAVOR) 0.5 MG [Suspect]
     Dosage: (30 MG 1X ORAL)
     Route: 048
     Dates: start: 20070512, end: 20070512

REACTIONS (4)
  - INTENTIONAL OVERDOSE [None]
  - MYDRIASIS [None]
  - SOMNOLENCE [None]
  - SUICIDE ATTEMPT [None]
